FAERS Safety Report 7889520-5 (Version None)
Quarter: 2011Q4

REPORT INFORMATION
  Report Type: 
  Country: None (occurrence: None)
  Receive Date: 20111103
  Receipt Date: 20111031
  Transmission Date: 20120403
  Serious: Yes (Other)
  Sender: FDA-Public Use
  Company Number: IL-PFIZER INC-2011207740

PATIENT
  Age: 16 Year
  Sex: Male

DRUGS (7)
  1. NYSTATIN [Concomitant]
  2. AMIKACIN [Concomitant]
  3. PIPERACILLIN AND TAZOBACTAM [Concomitant]
  4. NEUPOGEN [Concomitant]
  5. RESPRIM [Concomitant]
  6. ERAXIS [Suspect]
     Indication: SYSTEMIC CANDIDA
     Dosage: 100 MG, 1X/DAY
     Route: 042
     Dates: start: 20110812, end: 20110818
  7. VANCOMYCIN [Concomitant]

REACTIONS (4)
  - RASH [None]
  - PARAPLEGIA [None]
  - ABDOMINAL PAIN [None]
  - PYREXIA [None]
